FAERS Safety Report 9656010 (Version 1)
Quarter: 2013Q4

REPORT INFORMATION
  Report Type: Spontaneous
  Country: FR (occurrence: FR)
  Receive Date: 20131030
  Receipt Date: 20131030
  Transmission Date: 20140711
  Serious: Yes (Hospitalization)
  Sender: FDA-Public Use
  Company Number: FR-BAYER-2013-131335

PATIENT
  Age: 33 Year
  Sex: Female

DRUGS (2)
  1. CIFLOX [Suspect]
     Dosage: 500 MG, TID
     Route: 048
     Dates: start: 20130907, end: 20131002
  2. TAZOCILLINE [Suspect]
     Dosage: 4 G, TID
     Route: 042
     Dates: start: 20130907, end: 20131002

REACTIONS (2)
  - Neutropenia [Recovered/Resolved]
  - Pancytopenia [Recovered/Resolved]
